FAERS Safety Report 7194299-9 (Version None)
Quarter: 2010Q4

REPORT INFORMATION
  Report Type: 
  Country: None (occurrence: None)
  Receive Date: 20101223
  Receipt Date: 20100916
  Transmission Date: 20110411
  Serious: No
  Sender: FDA-Public Use
  Company Number: US-BAUSCH-2010BL004873

PATIENT
  Age: 52 Year
  Sex: Male

DRUGS (1)
  1. ZIRGAN [Suspect]
     Indication: PRODUCT USED FOR UNKNOWN INDICATION
     Route: 047
     Dates: start: 20100824, end: 20100826

REACTIONS (2)
  - EYE IRRITATION [None]
  - EYE PAIN [None]
